FAERS Safety Report 5028245-0 (Version None)
Quarter: 2006Q2

REPORT INFORMATION
  Report Type: 
  Country: None (occurrence: None)
  Receive Date: 20060503
  Receipt Date: 20060309
  Transmission Date: 20061013
  Serious: No
  Sender: FDA-Public Use
  Company Number: FACT0600153

PATIENT
  Age: 26 Year
  Sex: Female
  Weight: 113.4 kg

DRUGS (2)
  1. FACTIVE [Suspect]
     Indication: RESPIRATORY TRACT INFECTION BACTERIAL
     Dosage: 320 MG, QD, ORAL
     Route: 048
     Dates: start: 20060306, end: 20060307
  2. AZITHROMYCIN [Suspect]
     Indication: PHARYNGITIS
     Dates: start: 20060307, end: 20060301

REACTIONS (6)
  - DYSPNOEA [None]
  - GENERALISED OEDEMA [None]
  - RASH [None]
  - RETCHING [None]
  - THROAT TIGHTNESS [None]
  - URTICARIA GENERALISED [None]
